FAERS Safety Report 6034432-5 (Version None)
Quarter: 2009Q1

REPORT INFORMATION
  Report Type: 
  Country: None (occurrence: None)
  Receive Date: 20090112
  Receipt Date: 20090109
  Transmission Date: 20090719
  Serious: Yes (Other)
  Sender: FDA-Public Use
  Company Number: B0552131A

PATIENT
  Age: 47 Year
  Sex: Male

DRUGS (1)
  1. ZEFIX [Suspect]
     Indication: DRUG USE FOR UNKNOWN INDICATION
     Route: 048
     Dates: start: 20000101

REACTIONS (2)
  - HEPATIC ENZYME INCREASED [None]
  - VISUAL IMPAIRMENT [None]
